FAERS Safety Report 5671682-1 (Version None)
Quarter: 2008Q1

REPORT INFORMATION
  Report Type: 
  Country: None (occurrence: None)
  Receive Date: 20080314
  Receipt Date: 20080312
  Transmission Date: 20080703
  Serious: Yes (Death)
  Sender: FDA-Public Use
  Company Number: 163-21880-08020400

PATIENT
  Age: 20 Year
  Sex: Female

DRUGS (1)
  1. REVLIMID [Suspect]
     Indication: ACUTE MONOCYTIC LEUKAEMIA
     Dosage: ORAL
     Route: 048
     Dates: start: 20070901

REACTIONS (1)
  - DEATH [None]
